FAERS Safety Report 10090851 (Version 1)
Quarter: 2014Q2

REPORT INFORMATION
  Report Type: Spontaneous
  Country: GB (occurrence: GB)
  Receive Date: 20140421
  Receipt Date: 20140421
  Transmission Date: 20141212
  Serious: Yes (Other)
  Sender: FDA-Public Use
  Company Number: PHHY2014GB045375

PATIENT
  Sex: 0

DRUGS (1)
  1. LIDOCAINE [Suspect]
     Indication: INJURY
     Dosage: 3 MG/KG, UNK

REACTIONS (4)
  - Muscular weakness [Recovered/Resolved]
  - Tremor [Recovered/Resolved]
  - Hypersensitivity [Recovered/Resolved]
  - Speech disorder [Recovered/Resolved]
